FAERS Safety Report 25065961 (Version 1)
Quarter: 2025Q1

REPORT INFORMATION
  Report Type: Spontaneous
  Country: EG (occurrence: EG)
  Receive Date: 20250312
  Receipt Date: 20250312
  Transmission Date: 20250409
  Serious: Yes (Other)
  Sender: NOVO NORDISK
  Company Number: EG-NOVOPROD-1382513

PATIENT
  Age: 902 Month
  Sex: Male
  Weight: 82 kg

DRUGS (1)
  1. NOVORAPID [Suspect]
     Active Substance: INSULIN ASPART
     Indication: Diabetes mellitus
     Dosage: 26 IU, QD(8 U AT BREAKFAST AND 10 U AT LUNCH AND 8 U AT DINNER)
     Route: 058
     Dates: start: 2020

REACTIONS (2)
  - Cataract [Not Recovered/Not Resolved]
  - Retinal tear [Not Recovered/Not Resolved]
